FAERS Safety Report 8952895 (Version 1)
Quarter: 2012Q4

REPORT INFORMATION
  Report Type: 
  Country: US (occurrence: US)
  Receive Date: 20121203
  Receipt Date: 20121203
  Transmission Date: 20130627
  Serious: Yes (Other)
  Sender: FDA-Public Use
  Company Number: CHPA2012US024066

PATIENT
  Age: 49 Year
  Sex: Female

DRUGS (1)
  1. VOLTAREN GEL [Suspect]
     Indication: PAIN
     Dosage: 2 inches, daily
     Route: 061
     Dates: start: 2009

REACTIONS (4)
  - Chondropathy [Unknown]
  - Cartilage injury [Unknown]
  - Ligament injury [Unknown]
  - Underdose [Unknown]
